FAERS Safety Report 5958976-7 (Version None)
Quarter: 2008Q4

REPORT INFORMATION
  Report Type: 
  Country: None (occurrence: None)
  Receive Date: 20081117
  Receipt Date: 20081105
  Transmission Date: 20090506
  Serious: Yes (Hospitalization)
  Sender: FDA-Public Use
  Company Number: 2008-04058

PATIENT
  Age: 72 Year
  Sex: Male
  Weight: 97 kg

DRUGS (5)
  1. VELCADE [Suspect]
     Indication: DRUG USE FOR UNKNOWN INDICATION
     Dosage: 2.7MG, INTRAVENOUS
     Route: 042
     Dates: start: 20070424, end: 20070706
  2. SIMVASTATIN [Concomitant]
  3. SELOKEEN (METOPROLOL TARTRATE) [Concomitant]
  4. THYRAX (LEVOTHYROXINE) [Concomitant]
  5. ACETAMINOPHEN [Concomitant]

REACTIONS (2)
  - ORTHOSTATIC HYPOTENSION [None]
  - POLYNEUROPATHY [None]
